FAERS Safety Report 6291762-X (Version None)
Quarter: 2009Q3

REPORT INFORMATION
  Report Type: 
  Country: None (occurrence: None)
  Receive Date: 20090729
  Receipt Date: 20090724
  Transmission Date: 20100115
  Serious: Yes (Death)
  Sender: FDA-Public Use
  Company Number: 2009006996

PATIENT
  Age: 41 Year
  Sex: Male
  Weight: 94.8018 kg

DRUGS (1)
  1. PROVIGIL [Suspect]
     Indication: DEPRESSION
     Dosage: 200 MG (200 MG, 1 IN 1 D), ORAL
     Route: 048
     Dates: start: 20080430

REACTIONS (5)
  - ARTERIOSCLEROSIS [None]
  - CARDIOMEGALY [None]
  - CHEMICAL POISONING [None]
  - DRUG DEPENDENCE [None]
  - DRUG TOXICITY [None]
